FAERS Safety Report 8393174-1 (Version None)
Quarter: 2012Q2

REPORT INFORMATION
  Report Type: 
  Country: None (occurrence: None)
  Receive Date: 20120529
  Receipt Date: 20120511
  Transmission Date: 20120825
  Serious: No
  Sender: FDA-Public Use
  Company Number: US-ABBOTT-12P-163-0934686-00

PATIENT
  Sex: Male
  Weight: 89.892 kg

DRUGS (4)
  1. ANDROGEL [Suspect]
     Indication: BLOOD TESTOSTERONE DECREASED
     Route: 061
     Dates: start: 20120501
  2. CRESTOR [Concomitant]
     Indication: BLOOD CHOLESTEROL
  3. BENICAR [Concomitant]
     Indication: BLOOD PRESSURE
  4. ANDROGEL [Suspect]
     Dosage: 1%, 6.25 GRAMS, ONCE DAILY
     Dates: start: 20100101, end: 20120501

REACTIONS (1)
  - TESTICULAR PAIN [None]
